FAERS Safety Report 15631552 (Version 1)
Quarter: 2018Q4

REPORT INFORMATION
  Report Type: Spontaneous
  Country: US (occurrence: US)
  Receive Date: 20181119
  Receipt Date: 20181119
  Transmission Date: 20190205
  Serious: No
  Sender: FDA-Public Use
  Company Number: US-AUROBINDO-AUR-APU-2018-025450

PATIENT

DRUGS (1)
  1. PANTOPRAZOLE 20MG [Suspect]
     Active Substance: PANTOPRAZOLE SODIUM
     Indication: PRODUCT USED FOR UNKNOWN INDICATION
     Route: 065

REACTIONS (4)
  - Oesophageal spasm [Recovered/Resolved]
  - Dyspepsia [Recovered/Resolved]
  - Heart rate increased [Recovered/Resolved]
  - Abdominal rigidity [Recovered/Resolved]
